APPROVED DRUG PRODUCT: LIKMEZ
Active Ingredient: METRONIDAZOLE
Strength: 500MG/5ML
Dosage Form/Route: SUSPENSION;ORAL
Application: N216755 | Product #001
Applicant: SAPTALIS PHARMACEUTICALS LLC
Approved: Sep 22, 2023 | RLD: Yes | RS: Yes | Type: RX

PATENTS:
Patent 12257236 | Expires: Jan 16, 2039
Patent 12257236 | Expires: Jan 16, 2039
Patent 12257236 | Expires: Jan 16, 2039
Patent 11541035 | Expires: Oct 4, 2039